FAERS Safety Report 25315597 (Version 1)
Quarter: 2025Q2

REPORT INFORMATION
  Report Type: Spontaneous
  Country: US (occurrence: US)
  Receive Date: 20250514
  Receipt Date: 20250514
  Transmission Date: 20250716
  Serious: Yes (Other)
  Sender: ROCHE
  Company Number: US-ROCHE-10000277918

PATIENT
  Sex: Male
  Weight: 106.59 kg

DRUGS (1)
  1. OCREVUS [Suspect]
     Active Substance: OCRELIZUMAB
     Indication: Primary progressive multiple sclerosis
     Route: 042

REACTIONS (4)
  - Blood glucose increased [Unknown]
  - Confusional state [Not Recovered/Not Resolved]
  - Hemiparesis [Unknown]
  - Off label use [Unknown]
